FAERS Safety Report 8591361-0 (Version None)
Quarter: 2012Q3

REPORT INFORMATION
  Report Type: 
  Country: None (occurrence: None)
  Receive Date: 20120730
  Receipt Date: 20120717
  Transmission Date: 20120928
  Serious: Yes (Hospitalization)
  Sender: FDA-Public Use
  Company Number: 2012PROUSA01585

PATIENT
  Age: 86 Year
  Sex: Male
  Weight: 86.2 kg

DRUGS (14)
  1. PROVENGE [Suspect]
  2. ADVAIR HFA [Concomitant]
  3. FLOMAX [Concomitant]
  4. COUMADIN [Concomitant]
  5. CARDIZEM [Concomitant]
  6. LIPITOR [Concomitant]
  7. SYNTHROID [Concomitant]
  8. AMIODARONE (AMIODARONE HYDROCHLORIDE) [Concomitant]
  9. OMEPRAZOLE [Concomitant]
  10. ZETIA [Concomitant]
  11. LASIX [Concomitant]
  12. POTASSIUM (POTASSIUM CHLORIDE) [Concomitant]
  13. PROVENGE [Suspect]
     Indication: PROSTATE CANCER METASTATIC
     Dosage: 250 ML, SINGLE, INTRAVENOUS
     Route: 042
     Dates: start: 20120604, end: 20120604
  14. PROVENGE [Suspect]
     Indication: PROSTATE CANCER METASTATIC
     Dosage: 250 ML, SINGLE, INTRAVENOUS
     Route: 042
     Dates: start: 20120618, end: 20120618

REACTIONS (1)
  - CARDIAC FAILURE CONGESTIVE [None]
